FAERS Safety Report 6620211-4 (Version None)
Quarter: 2010Q1

REPORT INFORMATION
  Report Type: 
  Country: None (occurrence: None)
  Receive Date: 20100308
  Receipt Date: 20100308
  Transmission Date: 20100710
  Serious: Yes (Other)
  Sender: FDA-Public Use
  Company Number: None

PATIENT
  Age: 53 Year
  Sex: Female
  Weight: 143.3367 kg

DRUGS (2)
  1. ACTOS [Suspect]
     Dosage: 30MG ONCE A DAY
     Dates: start: 20080105, end: 20090101
  2. ACTOS [Suspect]
     Dosage: 30MG ONCE A DAY
     Dates: end: 20100206

REACTIONS (11)
  - ASTHENIA [None]
  - BONE PAIN [None]
  - CARDIAC FAILURE [None]
  - CHILLS [None]
  - DYSPNOEA [None]
  - HEADACHE [None]
  - MYALGIA [None]
  - OEDEMA PERIPHERAL [None]
  - PRURITUS [None]
  - RESPIRATION ABNORMAL [None]
  - WEIGHT INCREASED [None]
